FAERS Safety Report 4355203-1 (Version None)
Quarter: 2004Q2

REPORT INFORMATION
  Report Type: 
  Country: None (occurrence: None)
  Receive Date: 20040510
  Receipt Date: 20040504
  Transmission Date: 20050107
  Serious: Yes (Other)
  Sender: FDA-Public Use
  Company Number: PHNU2004DE01725

PATIENT
  Age: 70 Year
  Sex: Male

DRUGS (4)
  1. TEGRETOL [Suspect]
     Indication: TRIGEMINAL NEURALGIA
     Dosage: 1200MG/DAY
     Route: 065
     Dates: end: 20040401
  2. TEGRETOL [Suspect]
     Dosage: GRADUALLY DISCONTINUED
     Route: 065
     Dates: start: 20040401, end: 20040401
  3. NEURONTIN [Concomitant]
     Indication: TRIGEMINAL NEURALGIA
     Route: 065
     Dates: end: 20040401
  4. NEURONTIN [Concomitant]
     Dosage: GRADUALLY DISCONTINUED
     Route: 065
     Dates: start: 20040401, end: 20040401

REACTIONS (3)
  - APATHY [None]
  - ASTHENIA [None]
  - DRUG WITHDRAWAL SYNDROME [None]
